FAERS Safety Report 20446326 (Version 1)
Quarter: 2022Q1

REPORT INFORMATION
  Report Type: Spontaneous
  Country: BG (occurrence: BG)
  Receive Date: 20220208
  Receipt Date: 20220208
  Transmission Date: 20220423
  Serious: Yes (Life-Threatening, Hospitalization)
  Sender: FDA-Public Use
  Company Number: BG-GE HEALTHCARE-2022CSU000735

PATIENT
  Age: 75 Year
  Sex: Male

DRUGS (7)
  1. DATSCAN [Suspect]
     Active Substance: IODINE\IOFLUPANE I-123
     Indication: Single photon emission computerised tomogram
     Dosage: 148 MBQ, SINGLE
     Route: 042
     Dates: start: 20211216, end: 20211216
  2. DATSCAN [Suspect]
     Active Substance: IODINE\IOFLUPANE I-123
     Indication: Parkinson^s disease
  3. POTASSIUM IODIDE [Concomitant]
     Active Substance: POTASSIUM IODIDE
     Indication: Prophylaxis
     Dosage: 100 MG, SINGLE
     Route: 048
     Dates: start: 20211216, end: 20211216
  4. ELIQUIS [Concomitant]
     Active Substance: APIXABAN
     Indication: Hypertension
     Dosage: 5 MG, BID
     Route: 048
  5. BISOLEN [Concomitant]
     Indication: Hypertension
     Dosage: 5 MG, BID
     Route: 048
  6. IRBEST [Concomitant]
     Indication: Hypertension
     Dosage: 150 MG, BID
     Route: 048
  7. PRAZOSIN [Concomitant]
     Active Substance: PRAZOSIN
     Indication: Hypertension
     Dosage: 2 MG, TID
     Route: 048

REACTIONS (1)
  - Toxic epidermal necrolysis [Recovered/Resolved]

NARRATIVE: CASE EVENT DATE: 20211216
